FAERS Safety Report 15096175 (Version 1)
Quarter: 2018Q3

REPORT INFORMATION
  Report Type: Spontaneous
  Country: US (occurrence: US)
  Receive Date: 20180702
  Receipt Date: 20180702
  Transmission Date: 20181010
  Serious: Yes (Life-Threatening)
  Sender: FDA-Public Use
  Company Number: PHHY2018US028504

PATIENT
  Age: 29 Year
  Sex: Female

DRUGS (1)
  1. HYDROXYCHLOROQUINE [Suspect]
     Active Substance: HYDROXYCHLOROQUINE
     Indication: SUBACUTE CUTANEOUS LUPUS ERYTHEMATOSUS
     Dosage: 400 MG, QD
     Route: 065

REACTIONS (7)
  - Fatigue [Unknown]
  - Transaminases increased [Unknown]
  - Drug-induced liver injury [Unknown]
  - Nausea [Unknown]
  - Malaise [Unknown]
  - Chills [Unknown]
  - Chromaturia [Unknown]
